FAERS Safety Report 8796973 (Version 2)
Quarter: 2012Q4

REPORT INFORMATION
  Report Type: Report from Study
  Country: CA (occurrence: CA)
  Receive Date: 20120919
  Receipt Date: 20121025
  Transmission Date: 20130627
  Serious: Yes (Other)
  Sender: FDA-Public Use
  Company Number: CA-UCBSA-054542

PATIENT
  Age: 26 None
  Sex: Female
  Weight: 40.9 kg

DRUGS (8)
  1. CIMZIA [Suspect]
     Indication: RHEUMATOID ARTHRITIS
     Dates: start: 2012, end: 20120911
  2. CIMZIA [Suspect]
     Indication: RHEUMATOID ARTHRITIS
     Route: 058
     Dates: start: 20110212, end: 201207
  3. CIMZIA [Suspect]
     Indication: RHEUMATOID ARTHRITIS
     Route: 058
     Dates: start: 20110101, end: 20110129
  4. IBUPROFEN [Concomitant]
     Indication: RHEUMATOID ARTHRITIS
     Route: 048
  5. METHOTREXATE [Concomitant]
     Indication: RHEUMATOID ARTHRITIS
     Dosage: DOSE PER INTAKE : 6 X 2.5 MG QWK
     Route: 048
     Dates: start: 2006
  6. TYLENOL [Concomitant]
     Indication: RHEUMATOID ARTHRITIS
     Route: 048
  7. TRICYCLINE [Concomitant]
     Indication: CONTRACEPTION
  8. VITAMINS/MINERALS [Concomitant]

REACTIONS (10)
  - Vaginal laceration [Not Recovered/Not Resolved]
  - Rectal fissure [Not Recovered/Not Resolved]
  - Vaginal cyst [Unknown]
  - Smear cervix abnormal [Not Recovered/Not Resolved]
  - Ear infection [Unknown]
  - Lower respiratory tract infection [Not Recovered/Not Resolved]
  - Nasal congestion [Not Recovered/Not Resolved]
  - Abdominal pain [Unknown]
  - Skin fissures [Not Recovered/Not Resolved]
  - Otorrhoea [Not Recovered/Not Resolved]
